FAERS Safety Report 18383499 (Version 1)
Quarter: 2020Q4

REPORT INFORMATION
  Report Type: Report from Study
  Country: GB (occurrence: GB)
  Receive Date: 20201014
  Receipt Date: 20201014
  Transmission Date: 20210114
  Serious: Yes (Other)
  Sender: FDA-Public Use
  Company Number: NVSC2020GB272914

PATIENT
  Sex: Female

DRUGS (1)
  1. HYRIMOZ [Suspect]
     Active Substance: ADALIMUMAB-ADAZ
     Indication: CROHN^S DISEASE
     Dosage: 160 MG WEEK 0, 80 MG WEEK 2, 40 MG EOW THEREAFTER
     Route: 058
     Dates: start: 20201001

REACTIONS (4)
  - Memory impairment [Unknown]
  - Aggression [Unknown]
  - Mental disorder [Unknown]
  - Schizophrenia [Unknown]
